FAERS Safety Report 9529638 (Version 1)
Quarter: 2013Q3

REPORT INFORMATION
  Report Type: Spontaneous
  Country: FR (occurrence: FR)
  Receive Date: 20130917
  Receipt Date: 20130917
  Transmission Date: 20140515
  Serious: Yes (Hospitalization)
  Sender: FDA-Public Use
  Company Number: FR-ELI_LILLY_AND_COMPANY-FR201309001854

PATIENT
  Age: 96 Year
  Sex: Female

DRUGS (6)
  1. UMULINE [Suspect]
     Indication: DIABETES MELLITUS
     Dosage: 12 IU, EACH MORNING
     Route: 058
     Dates: end: 20130406
  2. UMULINE [Suspect]
     Dosage: 10 IU, EACH EVENING
     Route: 058
     Dates: end: 20130406
  3. KARDEGIC [Suspect]
     Dosage: 75 MG, QD
     Route: 048
  4. DIGOXINE [Suspect]
     Indication: ATRIAL FIBRILLATION
     Dosage: 25 MG, QD
     Route: 048
  5. VALSARTAN [Suspect]
     Indication: HYPERTENSION
     Route: 048
  6. LAMALINE [Suspect]
     Indication: PAIN
     Route: 048

REACTIONS (2)
  - Hypoglycaemia [Recovered/Resolved]
  - Hyponatraemia [Recovered/Resolved]
